FAERS Safety Report 5026214-8 (Version None)
Quarter: 2006Q2

REPORT INFORMATION
  Report Type: 
  Country: None (occurrence: None)
  Receive Date: 20060608
  Receipt Date: 20060206
  Transmission Date: 20061013
  Serious: Yes (Life-Threatening, Hospitalization)
  Sender: FDA-Public Use
  Company Number: 2006018397

PATIENT
  Age: 75 Year
  Sex: Female
  Weight: 60 kg

DRUGS (1)
  1. PHENYTOIN [Suspect]
     Indication: ILL-DEFINED DISORDER
     Dosage: UNKNOWN, INTRAVENOUS
     Route: 042
     Dates: start: 20060129, end: 20060101

REACTIONS (5)
  - COMA [None]
  - CONVULSION [None]
  - DYSPNOEA [None]
  - OVERDOSE [None]
  - TREMOR [None]
